FAERS Safety Report 4651503-6 (Version None)
Quarter: 2005Q2

REPORT INFORMATION
  Report Type: 
  Country: None (occurrence: None)
  Receive Date: 20050503
  Receipt Date: 20050110
  Transmission Date: 20051028
  Serious: Yes (Hospitalization)
  Sender: FDA-Public Use
  Company Number: US-MERCK-0501USA00947

PATIENT
  Age: 64 Year
  Sex: Female
  Weight: 66 kg

DRUGS (15)
  1. OGEN [Concomitant]
     Indication: HYSTERECTOMY
     Route: 048
     Dates: start: 19971001, end: 20041101
  2. LASIX [Concomitant]
     Indication: WEIGHT DECREASED
     Route: 065
     Dates: start: 19970201, end: 20040101
  3. PHENTERMINE [Concomitant]
     Route: 065
     Dates: start: 20000101, end: 20000101
  4. ATIVAN [Concomitant]
     Indication: SLEEP DISORDER THERAPY
     Route: 048
     Dates: start: 20000301
  5. VIOXX [Suspect]
     Indication: SCIATICA
     Route: 048
     Dates: start: 20010301, end: 20040306
  6. NORVASC [Concomitant]
     Indication: HYPERTENSION
     Route: 048
     Dates: start: 19990201, end: 20040301
  7. SYNTHROID [Concomitant]
     Route: 048
  8. CIPRO [Concomitant]
     Route: 065
  9. ZOFRAN [Concomitant]
     Route: 065
  10. HYDROXYZINE HYDROCHLORIDE [Concomitant]
     Route: 065
  11. ZITHROMAX [Concomitant]
     Route: 065
  12. LEVAQUIN [Concomitant]
     Route: 065
  13. KLOR-CON [Concomitant]
     Route: 065
  14. [THERAPY UNSPECIFIED] [Concomitant]
     Route: 065
  15. VICODIN [Concomitant]
     Route: 048

REACTIONS (18)
  - ACUTE MYOCARDIAL INFARCTION [None]
  - ANXIETY [None]
  - BLOOD CHOLESTEROL INCREASED [None]
  - BLOOD HOMOCYSTEINE INCREASED [None]
  - CARDIOMEGALY [None]
  - CORONARY ARTERY ATHEROSCLEROSIS [None]
  - DIABETES MELLITUS [None]
  - ELECTROCARDIOGRAM ST SEGMENT ABNORMAL [None]
  - FEAR [None]
  - HOT FLUSH [None]
  - HYPERPHAGIA [None]
  - LIBIDO DECREASED [None]
  - MYOCARDIAL ISCHAEMIA [None]
  - OEDEMA PERIPHERAL [None]
  - SOCIAL PROBLEM [None]
  - TRICUSPID VALVE INCOMPETENCE [None]
  - VENTRICULAR DYSFUNCTION [None]
  - VENTRICULAR HYPOKINESIA [None]
